FAERS Safety Report 9209610 (Version 1)
Quarter: 2013Q2

REPORT INFORMATION
  Report Type: Spontaneous
  Country: US (occurrence: None)
  Receive Date: 20130403
  Receipt Date: 20130403
  Transmission Date: 20140414
  Serious: Yes (Hospitalization, Disabling)
  Sender: FDA-Public Use
  Company Number: None

PATIENT
  Age: 62 Year
  Sex: Female
  Weight: 50.35 kg

DRUGS (1)
  1. KENALOG [Suspect]
     Indication: PAIN
     Dates: start: 20121009

REACTIONS (1)
  - Cerebrovascular accident [None]
